FAERS Safety Report 4875841-7 (Version None)
Quarter: 2006Q1

REPORT INFORMATION
  Report Type: 
  Country: None (occurrence: None)
  Receive Date: 20060109
  Receipt Date: 20050311
  Transmission Date: 20060701
  Serious: Yes (Hospitalization, Disabling)
  Sender: FDA-Public Use
  Company Number: US-MERCK-0503USA02793

PATIENT
  Age: 56 Year
  Sex: Male
  Weight: 109 kg

DRUGS (7)
  1. VIOXX [Suspect]
     Indication: ARTHRALGIA
     Route: 048
     Dates: start: 20030106, end: 20040603
  2. VIOXX [Suspect]
     Route: 048
     Dates: start: 20030106, end: 20040603
  3. VIOXX [Suspect]
     Route: 048
     Dates: start: 20030106, end: 20040603
  4. VIOXX [Suspect]
     Route: 048
     Dates: start: 20030106, end: 20040603
  5. OXYCODONE [Concomitant]
     Route: 065
  6. HYDROCODONE BITARTRATE [Concomitant]
     Indication: NECK PAIN
     Route: 065
  7. HYDROCODONE BITARTRATE [Concomitant]
     Indication: BACK PAIN
     Route: 065

REACTIONS (6)
  - CARDIAC DISORDER [None]
  - CHEST PAIN [None]
  - CORONARY ARTERY DISEASE [None]
  - DIZZINESS [None]
  - HYPERTENSION [None]
  - OVERDOSE [None]
